FAERS Safety Report 6464450-4 (Version None)
Quarter: 2009Q4

REPORT INFORMATION
  Report Type: 
  Country: None (occurrence: None)
  Receive Date: 20091124
  Receipt Date: 20091110
  Transmission Date: 20100525
  Serious: Yes (Other)
  Sender: FDA-Public Use
  Company Number: 2009AC000407

PATIENT
  Age: 70 Year
  Sex: Male

DRUGS (1)
  1. DIGOXIN [Suspect]
     Dosage: PO
     Route: 048

REACTIONS (11)
  - CARDIOACTIVE DRUG LEVEL DECREASED [None]
  - CATARACT [None]
  - DIABETIC NEUROPATHY [None]
  - GAIT DISTURBANCE [None]
  - HYPOAESTHESIA [None]
  - JOINT RANGE OF MOTION DECREASED [None]
  - OBESITY [None]
  - OEDEMA PERIPHERAL [None]
  - PARAESTHESIA [None]
  - STASIS DERMATITIS [None]
  - STRABISMUS [None]
